FAERS Safety Report 13393713 (Version 1)
Quarter: 2017Q1

REPORT INFORMATION
  Report Type: Spontaneous
  Country: US (occurrence: US)
  Receive Date: 20170331
  Receipt Date: 20170331
  Transmission Date: 20170429
  Serious: Yes (Hospitalization)
  Sender: FDA-Public Use
  Company Number: US-ELI_LILLY_AND_COMPANY-US201703011121

PATIENT
  Age: 81 Year
  Sex: Female

DRUGS (5)
  1. FORTEO [Suspect]
     Active Substance: TERIPARATIDE
     Dosage: UNK UNK, UNKNOWN
     Route: 065
     Dates: start: 201610
  2. FORTEO [Suspect]
     Active Substance: TERIPARATIDE
     Dosage: UNK UNK, UNKNOWN
     Route: 065
  3. CALCIUM [Concomitant]
     Active Substance: CALCIUM
  4. VITAMIN D [Concomitant]
     Active Substance: CHOLECALCIFEROL
  5. FORTEO [Suspect]
     Active Substance: TERIPARATIDE
     Indication: OSTEOPOROSIS
     Dosage: UNK UNK, UNKNOWN
     Route: 065
     Dates: start: 2015, end: 201610

REACTIONS (5)
  - Hip fracture [Recovering/Resolving]
  - Fall [Unknown]
  - Wrist fracture [Recovered/Resolved]
  - Fall [Unknown]
  - Dizziness [Unknown]

NARRATIVE: CASE EVENT DATE: 201609
